FAERS Safety Report 21964308 (Version 1)
Quarter: 2023Q1

REPORT INFORMATION
  Report Type: Spontaneous
  Country: CH (occurrence: CH)
  Receive Date: 20230207
  Receipt Date: 20230207
  Transmission Date: 20230418
  Serious: Yes (Other)
  Sender: FDA-Public Use
  Company Number: None

PATIENT

DRUGS (14)
  1. LAMICTAL [Suspect]
     Active Substance: LAMOTRIGINE
     Indication: Product used for unknown indication
     Dosage: 300 MG, BID
     Route: 065
     Dates: start: 20220415, end: 202207
  2. LAMICTAL [Suspect]
     Active Substance: LAMOTRIGINE
     Dosage: 350 MG, BID
     Route: 065
     Dates: start: 202207, end: 20221128
  3. LAMICTAL [Suspect]
     Active Substance: LAMOTRIGINE
     Dosage: 300 MG
     Route: 065
     Dates: start: 20221129, end: 20221130
  4. LAMICTAL [Suspect]
     Active Substance: LAMOTRIGINE
     Dosage: 250 MG, BID
     Route: 065
     Dates: start: 20221201, end: 20221211
  5. LAMICTAL [Suspect]
     Active Substance: LAMOTRIGINE
     Dosage: 200 MG, BID
     Route: 065
     Dates: start: 20221212
  6. LAMICTAL [Suspect]
     Active Substance: LAMOTRIGINE
     Dosage: 250 MG, BID
     Route: 065
     Dates: start: 20220407, end: 20220414
  7. LAMICTAL [Suspect]
     Active Substance: LAMOTRIGINE
     Dosage: 200 MG, BID
     Route: 065
     Dates: end: 20220406
  8. KEPPRA [Suspect]
     Active Substance: LEVETIRACETAM
     Indication: Product used for unknown indication
     Dosage: 1000 MG, BID (GRADUALLY AT 1000 MG TWICE A DAY)
     Route: 065
     Dates: start: 202207, end: 20221128
  9. LEVETIRACETAM [Suspect]
     Active Substance: LEVETIRACETAM
     Indication: Product used for unknown indication
     Dosage: 1250 MG, BID (GRADUALLY AT 1000 MG TWICE A DAY)
     Route: 065
     Dates: start: 20221128, end: 20221204
  10. LEVETIRACETAM [Suspect]
     Active Substance: LEVETIRACETAM
     Dosage: 1000 MG, BID
     Route: 065
     Dates: start: 20221205
  11. FOLIC ACID [Suspect]
     Active Substance: FOLIC ACID
     Indication: Product used for unknown indication
     Dosage: 5 MG, QD
     Route: 065
     Dates: end: 20220609
  12. FOLIC ACID [Suspect]
     Active Substance: FOLIC ACID
     Dosage: UNK
     Route: 065
     Dates: start: 20220610
  13. LEVOTHYROXINE [Suspect]
     Active Substance: LEVOTHYROXINE
     Indication: Product used for unknown indication
     Dosage: 25 ?G, QD  (INCREASED DURING PREGNANCY)
     Route: 065
     Dates: end: 2022
  14. LEVOTHYROXINE [Suspect]
     Active Substance: LEVOTHYROXINE
     Dosage: 50 ?G, QD  (INCREASED DURING PREGNANCY)
     Route: 065
     Dates: start: 2022

REACTIONS (3)
  - Partial seizures [Recovered/Resolved]
  - Drug ineffective [Recovered/Resolved]
  - Exposure during pregnancy [Recovered/Resolved]
